FAERS Safety Report 25133358 (Version 2)
Quarter: 2025Q2

REPORT INFORMATION
  Report Type: Report from Study
  Country: CH (occurrence: CH)
  Receive Date: 20250328
  Receipt Date: 20250522
  Transmission Date: 20250716
  Serious: Yes (Other)
  Sender: SERVIER
  Company Number: CH-SERVIER-S25003826

PATIENT

DRUGS (3)
  1. VORASIDENIB [Suspect]
     Active Substance: VORASIDENIB
     Indication: Astrocytoma, low grade
     Dosage: 40 MG, QD
     Route: 048
     Dates: start: 20240612, end: 20250319
  2. VORASIDENIB [Suspect]
     Active Substance: VORASIDENIB
     Dosage: 20 MG, QD
     Route: 048
  3. VORASIDENIB [Suspect]
     Active Substance: VORASIDENIB
     Dosage: 10 MG, QD
     Route: 048
     Dates: start: 20250428

REACTIONS (1)
  - Hepatotoxicity [Unknown]

NARRATIVE: CASE EVENT DATE: 20250319
